FAERS Safety Report 21136890 (Version 1)
Quarter: 2022Q3

REPORT INFORMATION
  Report Type: Spontaneous
  Country: US (occurrence: US)
  Receive Date: 20220727
  Receipt Date: 20220727
  Transmission Date: 20221027
  Serious: Yes (Other)
  Sender: FDA-Public Use
  Company Number: US-PFIZER INC-PV202200024379

PATIENT
  Age: 75 Year
  Sex: Male

DRUGS (2)
  1. MILRINONE [Suspect]
     Active Substance: MILRINONE
     Dosage: UNK
  2. EPOPROSTENOL [Suspect]
     Active Substance: EPOPROSTENOL
     Dosage: UNK
     Route: 055

REACTIONS (3)
  - Right-to-left cardiac shunt [Unknown]
  - Hypoxia [Unknown]
  - Condition aggravated [Unknown]
